FAERS Safety Report 24147802 (Version 2)
Quarter: 2024Q3

REPORT INFORMATION
  Report Type: Spontaneous
  Country: CA (occurrence: CA)
  Receive Date: 20240729
  Receipt Date: 20240913
  Transmission Date: 20241016
  Serious: Yes (Other)
  Sender: MERCK
  Company Number: CA-009507513-2407CAN014303

PATIENT
  Sex: Female

DRUGS (1)
  1. KEYTRUDA [Suspect]
     Active Substance: PEMBROLIZUMAB
     Indication: Renal cell carcinoma
     Dosage: 150 MILLIGRAM, Q3W
     Route: 065
     Dates: start: 20240325, end: 20240617

REACTIONS (2)
  - Renal cancer recurrent [Unknown]
  - Incorrect dose administered [Unknown]

NARRATIVE: CASE EVENT DATE: 20240325
